FAERS Safety Report 14582949 (Version 1)
Quarter: 2018Q1

REPORT INFORMATION
  Report Type: Spontaneous
  Country: CH (occurrence: CH)
  Receive Date: 20180228
  Receipt Date: 20180228
  Transmission Date: 20180509
  Serious: Yes (Hospitalization, Other)
  Sender: FDA-Public Use
  Company Number: CH-ASTRAZENECA-2018SE22252

PATIENT
  Sex: Male
  Weight: 1.6 kg

DRUGS (8)
  1. RIVOTRIL [Suspect]
     Active Substance: CLONAZEPAM
     Route: 064
     Dates: start: 2017
  2. CLEXANE [Suspect]
     Active Substance: ENOXAPARIN SODIUM
     Route: 064
     Dates: start: 2017
  3. SERTRALINE [Suspect]
     Active Substance: SERTRALINE HYDROCHLORIDE
     Dosage: 25.0MG UNKNOWN
     Route: 064
  4. UTROGESTAN [Concomitant]
     Active Substance: PROGESTERONE
     Route: 064
  5. NEXIUM [Suspect]
     Active Substance: ESOMEPRAZOLE MAGNESIUM
     Route: 064
     Dates: start: 2017
  6. METHADONE [Suspect]
     Active Substance: METHADONE HYDROCHLORIDE
     Dosage: 30.0MG UNKNOWN
     Route: 064
  7. FLURAZEPAM [Suspect]
     Active Substance: FLURAZEPAM\FLURAZEPAM HYDROCHLORIDE
     Dosage: 30.0MG UNKNOWN
     Route: 064
     Dates: start: 2017
  8. BUPROPION. [Suspect]
     Active Substance: BUPROPION
     Dosage: 300.0MG UNKNOWN
     Route: 064
     Dates: start: 2017

REACTIONS (4)
  - Foetal growth restriction [Recovered/Resolved]
  - Exposure during pregnancy [Recovered/Resolved]
  - Premature baby [Recovered/Resolved]
  - Withdrawal syndrome [Recovered/Resolved]

NARRATIVE: CASE EVENT DATE: 2017
